FAERS Safety Report 5597126-6 (Version None)
Quarter: 2008Q1

REPORT INFORMATION
  Report Type: 
  Country: None (occurrence: None)
  Receive Date: 20080121
  Receipt Date: 20080109
  Transmission Date: 20080703
  Serious: Yes (Disabling, Other)
  Sender: FDA-Public Use
  Company Number: PL-WYE-H02065208

PATIENT
  Sex: Female
  Weight: 67 kg

DRUGS (1)
  1. SIROLIMUS [Suspect]
     Indication: PROPHYLAXIS AGAINST TRANSPLANT REJECTION
     Route: 048
     Dates: start: 20041122, end: 20060920

REACTIONS (2)
  - HAEMODIALYSIS [None]
  - TRANSPLANT FAILURE [None]
